FAERS Safety Report 21395631 (Version 1)
Quarter: 2022Q3

REPORT INFORMATION
  Report Type: Spontaneous
  Country: US (occurrence: None)
  Receive Date: 20220928
  Receipt Date: 20220928
  Transmission Date: 20221027
  Serious: Yes (Hospitalization)
  Sender: FDA-Public Use
  Company Number: None

PATIENT
  Sex: Male

DRUGS (1)
  1. ICATIBANT ACETATE [Suspect]
     Active Substance: ICATIBANT ACETATE
     Indication: Complement fixation abnormal
     Dosage: FREQUENCY : AS NEEDED;?
     Route: 058
     Dates: start: 20220730

REACTIONS (3)
  - Injection site irritation [None]
  - Injection site swelling [None]
  - Product substitution issue [None]
